FAERS Safety Report 19750320 (Version 1)
Quarter: 2021Q3

REPORT INFORMATION
  Report Type: Spontaneous
  Country: US (occurrence: US)
  Receive Date: 20210826
  Receipt Date: 20210826
  Transmission Date: 20211014
  Serious: Yes (Other)
  Sender: FDA-Public Use
  Company Number: None

PATIENT
  Age: 19 Year
  Sex: Male
  Weight: 81 kg

DRUGS (9)
  1. GLYCOPYRROLATE (GENERIC ROBINUL) [Suspect]
     Active Substance: GLYCOPYRROLATE
     Indication: HYPERHIDROSIS
     Dosage: ??
     Route: 048
  2. CLASSIC WHEY PROTEIN SUPPLEMENT [Concomitant]
  3. SEYSARA [Concomitant]
     Active Substance: SARECYCLINE HYDROCHLORIDE
  4. ONE A DAY VITACRAVES MEN^S GUMMIES [Concomitant]
  5. QBREXZA [Concomitant]
     Active Substance: GLYCOPYRRONIUM TOSYLATE
  6. AXE + SLEDGE SUPPLEMENTS HYDRAULIC ENERTY PRE?WORK OUT [Concomitant]
  7. PHOSPHATE LOTION 1% [Concomitant]
  8. EPIDUO FORTE GEL 0.3?2.5% [Concomitant]
  9. CLINDAMYCIN. [Concomitant]
     Active Substance: CLINDAMYCIN

REACTIONS (3)
  - Vision blurred [None]
  - Constipation [None]
  - Dry mouth [None]

NARRATIVE: CASE EVENT DATE: 20210815
